FAERS Safety Report 8116616-5 (Version None)
Quarter: 2012Q1

REPORT INFORMATION
  Report Type: 
  Country: None (occurrence: None)
  Receive Date: 20120206
  Receipt Date: 20120124
  Transmission Date: 20120608
  Serious: Yes (Other)
  Sender: FDA-Public Use
  Company Number: PHEH2012US002140

PATIENT
  Sex: Male

DRUGS (3)
  1. RITALIN [Suspect]
  2. XANAX [Suspect]
  3. OXYCODONE HCL [Suspect]

REACTIONS (1)
  - DRUG ABUSE [None]
